FAERS Safety Report 25286369 (Version 1)
Quarter: 2025Q2

REPORT INFORMATION
  Report Type: Spontaneous
  Country: CN (occurrence: CN)
  Receive Date: 20250509
  Receipt Date: 20250509
  Transmission Date: 20250716
  Serious: Yes (Hospitalization, Other)
  Sender: RANBAXY
  Company Number: CN-SUN PHARMACEUTICAL INDUSTRIES LTD-2025R1-506727

PATIENT
  Age: 63 Year
  Sex: Male

DRUGS (4)
  1. CAPECITABINE [Suspect]
     Active Substance: CAPECITABINE
     Indication: Chemotherapy
     Route: 065
     Dates: start: 20200630, end: 20201020
  2. OXALIPLATIN [Suspect]
     Active Substance: OXALIPLATIN
     Indication: Chemotherapy
     Route: 065
     Dates: start: 20200630, end: 20201020
  3. TISLELIZUMAB [Suspect]
     Active Substance: TISLELIZUMAB
     Indication: Chemotherapy
     Route: 065
     Dates: start: 20200630, end: 20201020
  4. TISLELIZUMAB [Suspect]
     Active Substance: TISLELIZUMAB
     Route: 065
     Dates: start: 20210504

REACTIONS (2)
  - Diabetes mellitus [Unknown]
  - Hyperkalaemia [Unknown]
